FAERS Safety Report 25448713 (Version 2)
Quarter: 2025Q3

REPORT INFORMATION
  Report Type: Spontaneous
  Country: US (occurrence: US)
  Receive Date: 20250618
  Receipt Date: 20250919
  Transmission Date: 20251020
  Serious: No
  Sender: BIOGEN
  Company Number: US-BIOGEN-2025BI01314406

PATIENT
  Sex: Female

DRUGS (5)
  1. VUMERITY [Suspect]
     Active Substance: DIROXIMEL FUMARATE
     Indication: Multiple sclerosis
     Dosage: START DATE ALSO PROVIDED AS 03-JUN-2025.
     Route: 050
     Dates: start: 20250605, end: 20250611
  2. VUMERITY [Suspect]
     Active Substance: DIROXIMEL FUMARATE
     Route: 050
     Dates: start: 20250612, end: 20250614
  3. VUMERITY [Suspect]
     Active Substance: DIROXIMEL FUMARATE
     Route: 050
     Dates: start: 2025
  4. EZETIMIBE [Suspect]
     Active Substance: EZETIMIBE
     Indication: Blood cholesterol abnormal
     Route: 050
     Dates: start: 20250530
  5. EZETIMIBE [Suspect]
     Active Substance: EZETIMIBE
     Route: 050
     Dates: start: 20250615

REACTIONS (9)
  - Joint swelling [Not Recovered/Not Resolved]
  - Peripheral swelling [Not Recovered/Not Resolved]
  - Disorientation [Not Recovered/Not Resolved]
  - Myalgia [Not Recovered/Not Resolved]
  - Faeces soft [Not Recovered/Not Resolved]
  - Dizziness [Unknown]
  - Flatulence [Recovered/Resolved]
  - Constipation [Recovered/Resolved]
  - Dyspepsia [Recovered/Resolved]

NARRATIVE: CASE EVENT DATE: 20250101
